FAERS Safety Report 9399730 (Version 1)
Quarter: 2013Q3

REPORT INFORMATION
  Report Type: Report from Study
  Country: CA (occurrence: CA)
  Receive Date: 20130715
  Receipt Date: 20130715
  Transmission Date: 20140515
  Serious: Yes (Other)
  Sender: FDA-Public Use
  Company Number: CA-JNJFOC-20130705378

PATIENT
  Age: 64 Year
  Sex: Female
  Weight: 64.41 kg

DRUGS (1)
  1. REMICADE [Suspect]
     Indication: CROHN^S DISEASE
     Dosage: 2009 OR 2010
     Route: 042

REACTIONS (6)
  - Anaemia [Unknown]
  - Intestinal operation [Unknown]
  - Vomiting [Unknown]
  - Abdominal distension [Unknown]
  - Diarrhoea [Unknown]
  - Somnolence [Unknown]
